FAERS Safety Report 18947734 (Version 2)
Quarter: 2021Q2

REPORT INFORMATION
  Report Type: Spontaneous
  Country: US (occurrence: US)
  Receive Date: 20210226
  Receipt Date: 20210419
  Transmission Date: 20210717
  Serious: No
  Sender: FDA-Public Use
  Company Number: US-ORGANON-2102USA006768

PATIENT
  Sex: Female

DRUGS (6)
  1. FOLLISTIM AQ [Suspect]
     Active Substance: FOLLITROPIN
     Dosage: 900 INTERNATIONAL UNIT (3RD BOX)
     Dates: start: 2021, end: 2021
  2. FOLLISTIM AQ [Suspect]
     Active Substance: FOLLITROPIN
  3. FOLLISTIM AQ [Suspect]
     Active Substance: FOLLITROPIN
     Dosage: 900 INTERNATIONAL UNIT (2ND BOX)
     Dates: start: 2021, end: 2021
  4. FOLLISTIM AQ [Suspect]
     Active Substance: FOLLITROPIN
     Dosage: 900 INTERNATIONAL UNIT (4TH BOX)
     Dates: start: 2021, end: 2021
  5. FOLLISTIM AQ [Suspect]
     Active Substance: FOLLITROPIN
     Indication: IN VITRO FERTILISATION
     Dosage: 900 INTERNATIONAL UNIT (5TH BOX)
  6. FOLLISTIM AQ [Suspect]
     Active Substance: FOLLITROPIN
     Indication: IN VITRO FERTILISATION
     Dosage: 900 INTERNATIONAL UNIT (1ST BOX)
     Dates: start: 2021, end: 2021

REACTIONS (4)
  - No adverse event [Unknown]
  - Product packaging quantity issue [Unknown]
  - Suspected counterfeit product [Unknown]
  - Drug dose omission by device [Unknown]

NARRATIVE: CASE EVENT DATE: 20210212
